FAERS Safety Report 6937998-3 (Version None)
Quarter: 2010Q3

REPORT INFORMATION
  Report Type: 
  Country: None (occurrence: None)
  Receive Date: 20100824
  Receipt Date: 20100816
  Transmission Date: 20110219
  Serious: No
  Sender: FDA-Public Use
  Company Number: 2008BI018972

PATIENT
  Age: 51 Year
  Sex: Female

DRUGS (1)
  1. TYSABRI [Suspect]
     Indication: MULTIPLE SCLEROSIS
     Route: 042
     Dates: start: 20070713

REACTIONS (6)
  - BRONCHITIS [None]
  - FATIGUE [None]
  - HEADACHE [None]
  - NAUSEA [None]
  - STRABISMUS [None]
  - VOMITING [None]
